FAERS Safety Report 5553435-8 (Version None)
Quarter: 2007Q4

REPORT INFORMATION
  Report Type: 
  Country: None (occurrence: None)
  Receive Date: 20071211
  Receipt Date: 20071128
  Transmission Date: 20080405
  Serious: Yes (Hospitalization)
  Sender: FDA-Public Use
  Company Number: ABFLJ-07-1024

PATIENT
  Age: 65 Year
  Sex: Female

DRUGS (2)
  1. ABRAXANE [Suspect]
     Indication: BREAST CANCER METASTATIC
     Dosage: (ONCE A MONTH), INTRAVENOUS
     Route: 042
     Dates: start: 20070501, end: 20071101
  2. AVASTIN [Concomitant]

REACTIONS (4)
  - BILIARY DILATATION [None]
  - CHOLANGITIS SCLEROSING [None]
  - DRUG TOXICITY [None]
  - JAUNDICE [None]
